FAERS Safety Report 7564705-6 (Version None)
Quarter: 2011Q2

REPORT INFORMATION
  Report Type: 
  Country: None (occurrence: None)
  Receive Date: 20110622
  Receipt Date: 20101015
  Transmission Date: 20111010
  Serious: Yes (Other)
  Sender: FDA-Public Use
  Company Number: US-MYLANLABS-2010S1017063

PATIENT
  Age: 56 Year
  Sex: Female
  Weight: 87.54 kg

DRUGS (10)
  1. CLOZAPINE [Suspect]
     Indication: PSYCHOTIC DISORDER
     Route: 048
     Dates: start: 20100830, end: 20100917
  2. VISTARIL [Concomitant]
     Route: 048
  3. CLOZAPINE [Suspect]
     Route: 048
     Dates: start: 20100830, end: 20100917
  4. COGENTIN [Concomitant]
     Route: 048
  5. CLOZAPINE [Suspect]
     Indication: SCHIZOPHRENIA
     Route: 048
     Dates: start: 20100830, end: 20100917
  6. CLOZAPINE [Suspect]
     Route: 048
     Dates: start: 20100830, end: 20100917
  7. SYNTHROID [Concomitant]
     Indication: HYPOTHYROIDISM
     Route: 048
  8. CLOZAPINE [Suspect]
     Route: 048
     Dates: start: 20100830, end: 20100917
  9. CLOZAPINE [Suspect]
     Route: 048
     Dates: start: 20100830, end: 20100917
  10. NORVASC [Concomitant]
     Indication: BLOOD PRESSURE INCREASED
     Route: 048

REACTIONS (2)
  - GRANULOCYTOPENIA [None]
  - LEUKOPENIA [None]
